FAERS Safety Report 7451973-4 (Version None)
Quarter: 2011Q2

REPORT INFORMATION
  Report Type: 
  Country: None (occurrence: None)
  Receive Date: 20110502
  Receipt Date: 20110421
  Transmission Date: 20111010
  Serious: Yes (Hospitalization)
  Sender: FDA-Public Use
  Company Number: PHHY2011IN35672

PATIENT
  Age: 43 Year
  Sex: Female

DRUGS (1)
  1. ONDANSETRON [Suspect]
     Dosage: 4 MG, UNK
     Route: 042

REACTIONS (8)
  - HEART RATE DECREASED [None]
  - OXYGEN SATURATION DECREASED [None]
  - DIZZINESS [None]
  - RESPIRATORY ARREST [None]
  - SINUS BRADYCARDIA [None]
  - BLOOD PRESSURE DECREASED [None]
  - SYNCOPE [None]
  - LOSS OF CONSCIOUSNESS [None]
